FAERS Safety Report 4966192-0 (Version None)
Quarter: 2006Q2

REPORT INFORMATION
  Report Type: 
  Country: None (occurrence: None)
  Receive Date: 20060407
  Receipt Date: 20050926
  Transmission Date: 20061013
  Serious: Yes (Hospitalization, Disabling)
  Sender: FDA-Public Use
  Company Number: US-MERCK-0509USA03798

PATIENT
  Age: 47 Year
  Sex: Female
  Weight: 75 kg

DRUGS (4)
  1. VIOXX [Suspect]
     Indication: ARTHRALGIA
     Route: 048
     Dates: start: 19990101
  2. TYLENOL (CAPLET) [Concomitant]
     Route: 065
  3. METOPROLOL [Concomitant]
     Route: 065
  4. ASPIRIN [Concomitant]
     Route: 065

REACTIONS (6)
  - ARTERIAL OCCLUSIVE DISEASE [None]
  - CEREBROVASCULAR ACCIDENT [None]
  - MENTAL DISORDER [None]
  - MENTAL DISORDER DUE TO A GENERAL MEDICAL CONDITION [None]
  - MYOCARDIAL INFARCTION [None]
  - THYROID DISORDER [None]
